FAERS Safety Report 5299961-0 (Version None)
Quarter: 2007Q2

REPORT INFORMATION
  Report Type: 
  Country: None (occurrence: None)
  Receive Date: 20070410
  Receipt Date: 20070330
  Transmission Date: 20071010
  Serious: Yes (Death, Life-Threatening)
  Sender: FDA-Public Use
  Company Number: B0465089A

PATIENT
  Age: 57 Year
  Sex: Female

DRUGS (11)
  1. ZANTAC [Suspect]
     Dosage: UNK / UNKNOWN / INJECTION
  2. MORPHINE [Suspect]
     Dosage: UNK / UNKNOWN / INTRAVENOUS
     Route: 042
  3. PACLITAXEL [Concomitant]
  4. ME-PREDNISOLONE NA SUCC. [Concomitant]
  5. DEXCHLORPHENIRAM.MALEATE [Concomitant]
  6. ALPRAZOLAM [Concomitant]
  7. AMITRIPTYLINE HCL [Concomitant]
  8. GABAPENTIN [Concomitant]
  9. ESOMEPRAZOLE MAGNESIUM [Concomitant]
  10. ONDANSETRON HCL [Concomitant]
  11. METOCLOPRAMIDE HCL [Concomitant]

REACTIONS (8)
  - BRADYPNOEA [None]
  - DRUG INTERACTION [None]
  - HYPERHIDROSIS [None]
  - MIOSIS [None]
  - MYOCLONUS [None]
  - OVERDOSE [None]
  - RESPIRATORY DEPRESSION [None]
  - SOMNOLENCE [None]
